FAERS Safety Report 19963151 (Version 1)
Quarter: 2021Q4

REPORT INFORMATION
  Report Type: Spontaneous
  Country: US (occurrence: US)
  Receive Date: 20211015
  Receipt Date: 20211015
  Transmission Date: 20220304
  Serious: No
  Sender: FDA-Public Use
  Company Number: None

PATIENT
  Age: 23 Year
  Sex: Female
  Weight: 76.5 kg

DRUGS (2)
  1. FLUCONAZOLE [Suspect]
     Active Substance: FLUCONAZOLE
     Indication: Fungal infection
     Dosage: ?          QUANTITY:1 TABLET(S);OTHER FREQUENCY:48 HOURS;
     Route: 048
     Dates: start: 20210802, end: 20210802
  2. COLLAGEN [Concomitant]
     Active Substance: COLLAGEN

REACTIONS (3)
  - Palpitations [None]
  - Dizziness [None]
  - Insomnia [None]

NARRATIVE: CASE EVENT DATE: 20210802
